FAERS Safety Report 5117152-0 (Version None)
Quarter: 2006Q3

REPORT INFORMATION
  Report Type: 
  Country: None (occurrence: None)
  Receive Date: 20060927
  Receipt Date: 20060927
  Transmission Date: 20061208
  Serious: Yes (Hospitalization)
  Sender: FDA-Public Use
  Company Number: None

PATIENT
  Age: 50 Year
  Sex: Female
  Weight: 41.2773 kg

DRUGS (2)
  1. HEPARIN [Suspect]
     Indication: ARTERIAL BYPASS OPERATION
     Dosage: TITRATE DAILY IV
     Route: 042
     Dates: start: 20060914, end: 20060925
  2. HEPARIN [Suspect]
     Indication: INTESTINAL ISCHAEMIA
     Dosage: TITRATE DAILY IV
     Route: 042
     Dates: start: 20060914, end: 20060925

REACTIONS (2)
  - HEPARIN-INDUCED THROMBOCYTOPENIA [None]
  - POST PROCEDURAL COMPLICATION [None]
